FAERS Safety Report 7197171-3 (Version None)
Quarter: 2010Q4

REPORT INFORMATION
  Report Type: 
  Country: None (occurrence: None)
  Receive Date: 20101224
  Receipt Date: 20101214
  Transmission Date: 20110411
  Serious: Yes (Hospitalization)
  Sender: FDA-Public Use
  Company Number: PHHO2010DE18929

PATIENT
  Sex: Male

DRUGS (3)
  1. STI571/CGP57148B [Suspect]
     Indication: ACUTE LYMPHOCYTIC LEUKAEMIA
     Dosage: 400 MG DAILY
     Route: 048
     Dates: start: 20100706, end: 20101204
  2. CELLCEPT [Suspect]
  3. DECORTIN-H [Suspect]

REACTIONS (6)
  - ALANINE AMINOTRANSFERASE INCREASED [None]
  - ASPARTATE AMINOTRANSFERASE INCREASED [None]
  - GAMMA-GLUTAMYLTRANSFERASE INCREASED [None]
  - GRAFT VERSUS HOST DISEASE [None]
  - HERPES ZOSTER [None]
  - SECONDARY IMMUNODEFICIENCY [None]
